FAERS Safety Report 12915984 (Version 6)
Quarter: 2017Q1

REPORT INFORMATION
  Report Type: Report from Study
  Country: CO (occurrence: CO)
  Receive Date: 20161104
  Receipt Date: 20170324
  Transmission Date: 20170428
  Serious: Yes (Other)
  Sender: FDA-Public Use
  Company Number: CO-SA-2016SA199262

PATIENT
  Age: 31 Year
  Sex: Male

DRUGS (1)
  1. LEMTRADA [Suspect]
     Active Substance: ALEMTUZUMAB
     Indication: MULTIPLE SCLEROSIS
     Route: 041
     Dates: start: 20160913, end: 20160918

REACTIONS (8)
  - Asthenia [Not Recovered/Not Resolved]
  - Lymphopenia [Not Recovered/Not Resolved]
  - Monocyte count increased [Not Recovered/Not Resolved]
  - Neutrophil count increased [Recovered/Resolved]
  - Granulocyte count increased [Not Recovered/Not Resolved]
  - Leukopenia [Not Recovered/Not Resolved]
  - Pain in extremity [Not Recovered/Not Resolved]
  - Bacteriuria [Recovered/Resolved]

NARRATIVE: CASE EVENT DATE: 20161020
